FAERS Safety Report 13630341 (Version 1)
Quarter: 2017Q2

REPORT INFORMATION
  Report Type: Spontaneous
  Country: US (occurrence: US)
  Receive Date: 20170531
  Receipt Date: 20170531
  Transmission Date: 20170830
  Serious: No
  Sender: FDA-Public Use
  Company Number: US-ASTELLAS-1295881

PATIENT
  Sex: Female

DRUGS (1)
  1. TARCEVA [Suspect]
     Active Substance: ERLOTINIB HYDROCHLORIDE
     Indication: LUNG NEOPLASM MALIGNANT
     Route: 048
     Dates: start: 20130906, end: 20140425

REACTIONS (7)
  - Functional gastrointestinal disorder [Unknown]
  - Asthenia [Unknown]
  - Pruritus [Unknown]
  - Peripheral swelling [Recovering/Resolving]
  - Rash [Unknown]
  - Rash [Not Recovered/Not Resolved]
  - Alopecia [Unknown]
